FAERS Safety Report 24293432 (Version 1)
Quarter: 2024Q3

REPORT INFORMATION
  Report Type: Spontaneous
  Country: FR (occurrence: None)
  Receive Date: 20240906
  Receipt Date: 20240906
  Transmission Date: 20241017
  Serious: Yes (Hospitalization)
  Sender: ASTRAZENECA
  Company Number: 2024A203059

PATIENT
  Age: 0 Day
  Sex: Male
  Weight: 2.3 kg

DRUGS (6)
  1. QUETIAPINE [Suspect]
     Active Substance: QUETIAPINE
     Dates: end: 20240317
  2. COCAINE [Suspect]
     Active Substance: COCAINE
     Dosage: NOT INFORMED
  3. ALCOHOL [Suspect]
     Active Substance: ALCOHOL
  4. OXAZEPAM [Suspect]
     Active Substance: OXAZEPAM
  5. PAROXETINE HYDROCHLORIDE [Suspect]
     Active Substance: PAROXETINE HYDROCHLORIDE\PAROXETINE HYDROCHLORIDE ANHYDROUS
  6. CANNABIS SATIVA SUBSP. INDICA TOP [Suspect]
     Active Substance: CANNABIS SATIVA SUBSP. INDICA TOP

REACTIONS (3)
  - Premature baby [Recovered/Resolved]
  - Foetal exposure during pregnancy [Recovered/Resolved]
  - Low birth weight baby [Unknown]

NARRATIVE: CASE EVENT DATE: 20240317
